FAERS Safety Report 19983415 (Version 1)
Quarter: 2021Q4

REPORT INFORMATION
  Report Type: Spontaneous
  Country: US (occurrence: US)
  Receive Date: 20211021
  Receipt Date: 20211021
  Transmission Date: 20220303
  Serious: No
  Sender: FDA-Public Use
  Company Number: US-BAYER-2021A222900

PATIENT

DRUGS (2)
  1. NUBEQA [Suspect]
     Active Substance: DAROLUTAMIDE
  2. KYLEENA [Concomitant]
     Active Substance: LEVONORGESTREL

REACTIONS (4)
  - Influenza [Recovering/Resolving]
  - COVID-19 [None]
  - Malaise [None]
  - Migraine [None]
